FAERS Safety Report 8586284-7 (Version None)
Quarter: 2012Q3

REPORT INFORMATION
  Report Type: 
  Country: None (occurrence: None)
  Receive Date: 20120810
  Receipt Date: 20120731
  Transmission Date: 20120928
  Serious: Yes (Other)
  Sender: FDA-Public Use
  Company Number: CA-ROCHE-1098214

PATIENT
  Sex: Male

DRUGS (4)
  1. VENTOLIN [Concomitant]
  2. PREDNISONE TAB [Concomitant]
  3. XOLAIR [Suspect]
     Indication: ASTHMA
     Route: 058
     Dates: start: 20120306
  4. SYMBICORT [Concomitant]

REACTIONS (14)
  - PAIN [None]
  - OROPHARYNGEAL PAIN [None]
  - FOOD POISONING [None]
  - HEADACHE [None]
  - MALAISE [None]
  - DIZZINESS [None]
  - INSOMNIA [None]
  - CHEST DISCOMFORT [None]
  - MYALGIA [None]
  - WHEEZING [None]
  - DYSPNOEA [None]
  - PULMONARY FUNCTION TEST ABNORMAL [None]
  - CALCINOSIS [None]
  - MUSCLE SPASMS [None]
